FAERS Safety Report 8327280-4 (Version None)
Quarter: 2012Q2

REPORT INFORMATION
  Report Type: 
  Country: None (occurrence: None)
  Receive Date: 20120502
  Receipt Date: 20120420
  Transmission Date: 20120825
  Serious: Yes (Hospitalization)
  Sender: FDA-Public Use
  Company Number: FR-BRISTOL-MYERS SQUIBB COMPANY-16547135

PATIENT
  Age: 83 Year
  Sex: Female

DRUGS (10)
  1. COUMADIN [Suspect]
     Indication: ARRHYTHMIA
     Route: 048
     Dates: end: 20120227
  2. PRAVASTATIN SODIUM [Concomitant]
     Route: 048
  3. CORDARONE [Concomitant]
     Indication: ARRHYTHMIA
     Dates: start: 20120101, end: 20120227
  4. OMEPRAZOLE [Concomitant]
     Route: 048
  5. POTASSIUM CHLORIDE [Concomitant]
     Route: 048
  6. COUMADIN [Suspect]
     Indication: ATRIAL FIBRILLATION
     Route: 048
     Dates: end: 20120227
  7. OXAZEPAM [Concomitant]
     Route: 048
  8. LASIX [Concomitant]
     Dosage: SCORED TABLET
     Route: 048
  9. IPERTEN [Concomitant]
     Route: 048
  10. SYMBICORT [Concomitant]
     Dosage: TURBUHALER
     Route: 055

REACTIONS (3)
  - INTERNATIONAL NORMALISED RATIO INCREASED [None]
  - ANAEMIA [None]
  - MELAENA [None]
